FAERS Safety Report 6044941-0 (Version None)
Quarter: 2009Q1

REPORT INFORMATION
  Report Type: 
  Country: None (occurrence: None)
  Receive Date: 20090116
  Receipt Date: 20090116
  Transmission Date: 20090719
  Serious: Yes (Life-Threatening, Hospitalization)
  Sender: FDA-Public Use
  Company Number: None

PATIENT
  Age: 66 Year
  Sex: Male
  Weight: 63.5036 kg

DRUGS (1)
  1. VISICOL [Suspect]
     Indication: COLONOSCOPY
     Dates: start: 20050110, end: 20050110

REACTIONS (5)
  - ASTHENIA [None]
  - INFLUENZA [None]
  - MYALGIA [None]
  - RENAL IMPAIRMENT [None]
  - RENAL INJURY [None]
